FAERS Safety Report 21402715 (Version 1)
Quarter: 2022Q4

REPORT INFORMATION
  Report Type: Spontaneous
  Country: US (occurrence: US)
  Receive Date: 20221003
  Receipt Date: 20221003
  Transmission Date: 20230113
  Serious: No
  Sender: FDA-Public Use
  Company Number: US-PFIZER INC-PV202200073489

PATIENT

DRUGS (1)
  1. GLIPIZIDE [Suspect]
     Active Substance: GLIPIZIDE
     Dosage: 5 MG
     Dates: start: 202205

REACTIONS (3)
  - Musculoskeletal stiffness [Unknown]
  - Arthralgia [Unknown]
  - Back pain [Unknown]
